FAERS Safety Report 7630281-2 (Version None)
Quarter: 2011Q3

REPORT INFORMATION
  Report Type: 
  Country: None (occurrence: None)
  Receive Date: 20110722
  Receipt Date: 20110711
  Transmission Date: 20111222
  Serious: Yes (Hospitalization)
  Sender: FDA-Public Use
  Company Number: PHHY2011AU63430

PATIENT
  Age: 41 Year
  Sex: Male

DRUGS (2)
  1. PREDNISOLONE [Suspect]
     Indication: UVEITIS
  2. PREDNISOLONE [Suspect]
     Dosage: 75 MG, UNK

REACTIONS (10)
  - VITRITIS [None]
  - EYE INFLAMMATION [None]
  - RETINAL DISORDER [None]
  - VISUAL ACUITY REDUCED [None]
  - ANTERIOR CHAMBER CELL [None]
  - ANTERIOR CHAMBER FLARE [None]
  - RETINAL DETACHMENT [None]
  - CATARACT [None]
  - ENDOPHTHALMITIS [None]
  - IRIS ADHESIONS [None]
